FAERS Safety Report 6817688-8 (Version None)
Quarter: 2010Q3

REPORT INFORMATION
  Report Type: 
  Country: None (occurrence: None)
  Receive Date: 20100706
  Receipt Date: 20100624
  Transmission Date: 20110219
  Serious: Yes (Other)
  Sender: FDA-Public Use
  Company Number: US-PFIZER INC-2010079330

PATIENT
  Sex: Male
  Weight: 108 kg

DRUGS (11)
  1. ANTIVERT [Suspect]
     Indication: VERTIGO
     Dosage: 25 MG, 1X/DAY
     Route: 048
     Dates: end: 20100201
  2. ANTIVERT [Suspect]
     Dosage: UNK
     Dates: start: 20100301, end: 20100401
  3. ULTRAM [Concomitant]
     Indication: PAIN
     Dosage: 50 MG, 2X/DAY
     Route: 048
  4. NEXIUM [Concomitant]
     Dosage: 20 MG, 2X/DAY
     Route: 048
  5. SPIRIVA [Concomitant]
     Indication: CHRONIC OBSTRUCTIVE PULMONARY DISEASE
     Dosage: 18 UG, UNK
  6. CELEXA [Concomitant]
     Indication: NERVOUSNESS
     Dosage: 20 MG, 1X/DAY
  7. ADVAIR DISKUS 100/50 [Concomitant]
     Indication: CHRONIC OBSTRUCTIVE PULMONARY DISEASE
     Dosage: 250/50
  8. LISINOPRIL [Concomitant]
     Indication: HYPERTENSION
     Dosage: 20 MG, UNK
  9. TOPROL-XL [Concomitant]
     Dosage: 20 MG, 1X/DAY
  10. SALBUTAMOL SULFATE [Concomitant]
     Indication: CHRONIC OBSTRUCTIVE PULMONARY DISEASE
     Dosage: UNK
  11. METOPROLOL [Concomitant]
     Indication: HYPERTENSION
     Dosage: 25 MG, 2X/DAY

REACTIONS (3)
  - FLUID RETENTION [None]
  - URINARY RETENTION [None]
  - WEIGHT INCREASED [None]
